FAERS Safety Report 5622437-5 (Version None)
Quarter: 2008Q1

REPORT INFORMATION
  Report Type: 
  Country: None (occurrence: None)
  Receive Date: 20080114
  Receipt Date: 20070801
  Transmission Date: 20080703
  Serious: Yes (Hospitalization)
  Sender: FDA-Public Use
  Company Number: A03200704947

PATIENT
  Age: 78 Year
  Sex: Female

DRUGS (12)
  1. PLAVIX [Suspect]
     Indication: MYOCARDIAL INFARCTION
     Dosage: 75 MG QD - ORAL
     Route: 048
     Dates: start: 20070101
  2. PLAVIX [Suspect]
     Indication: STENT PLACEMENT
     Dosage: 75 MG QD - ORAL
     Route: 048
     Dates: start: 20070101
  3. LIPITOR [Suspect]
     Dates: end: 20070601
  4. ACETYLSALICYLIC ACID SRT [Concomitant]
  5. OLMESARTAN MEDOXOMIL [Concomitant]
  6. FUROSEMIDE [Concomitant]
  7. PIOGLITAZONE HCL [Concomitant]
  8. ENALAPRIL MALEATE [Concomitant]
  9. PREGABALIN [Concomitant]
  10. PANTOPRAZOLE SODIUM [Concomitant]
  11. PERCOCET [Concomitant]
  12. ALPRAZOLAM [Concomitant]

REACTIONS (5)
  - ASTHENIA [None]
  - BLOOD GLUCOSE INCREASED [None]
  - BLOOD IRON DECREASED [None]
  - HYPOTENSION [None]
  - ULCER HAEMORRHAGE [None]
